FAERS Safety Report 6306921-7 (Version None)
Quarter: 2009Q3

REPORT INFORMATION
  Report Type: 
  Country: None (occurrence: None)
  Receive Date: 20090811
  Receipt Date: 20090811
  Transmission Date: 20100115
  Serious: No
  Sender: FDA-Public Use
  Company Number: None

PATIENT
  Sex: Male
  Weight: 74.8435 kg

DRUGS (2)
  1. TOPAMAX [Suspect]
     Indication: BIPOLAR DISORDER
     Dosage: 800 MG -TOTAL, 1600 MG- 2X/DAY
     Dates: start: 20010101, end: 20080726
  2. . [Concomitant]

REACTIONS (5)
  - ANXIETY [None]
  - COMPLETED SUICIDE [None]
  - INSOMNIA [None]
  - ORAL DISORDER [None]
  - PARANOIA [None]
